FAERS Safety Report 22064038 (Version 1)
Quarter: 2023Q1

REPORT INFORMATION
  Report Type: Spontaneous
  Country: US (occurrence: None)
  Receive Date: 20230303
  Receipt Date: 20230303
  Transmission Date: 20230417
  Serious: Yes (Hospitalization)
  Sender: FDA-Public Use
  Company Number: None

PATIENT
  Age: 15 Year
  Sex: Male

DRUGS (1)
  1. EPIDIOLEX [Suspect]
     Active Substance: CANNABIDIOL
     Indication: Lennox-Gastaut syndrome
     Dosage: 100MG BID ORAL?
     Route: 048
     Dates: start: 20220329

REACTIONS (3)
  - Pyrexia [None]
  - Secretion discharge [None]
  - Pneumonia aspiration [None]

NARRATIVE: CASE EVENT DATE: 20230213
